APPROVED DRUG PRODUCT: VITEKTA
Active Ingredient: ELVITEGRAVIR
Strength: 150MG
Dosage Form/Route: TABLET;ORAL
Application: N203093 | Product #002
Applicant: GILEAD SCIENCES INC
Approved: Sep 24, 2014 | RLD: Yes | RS: No | Type: DISCN

PATENTS:
Patent 7176220 | Expires: Aug 27, 2026
Patent 8981103 | Expires: Oct 26, 2026
Patent 7176220*PED | Expires: Feb 27, 2027
Patent 7635704*PED | Expires: Apr 26, 2027
Patent 8981103*PED | Expires: Apr 26, 2027
Patent 7635704 | Expires: Oct 26, 2026